FAERS Safety Report 9406395 (Version 2)
Quarter: 2013Q3

REPORT INFORMATION
  Report Type: Spontaneous
  Country: CA (occurrence: CA)
  Receive Date: 20130718
  Receipt Date: 20130731
  Transmission Date: 20140515
  Serious: Yes (Hospitalization)
  Sender: FDA-Public Use
  Company Number: CA-ROCHE-1248412

PATIENT
  Age: 57 Year
  Sex: Female
  Weight: 52.3 kg

DRUGS (5)
  1. HERCEPTIN [Suspect]
     Indication: BREAST CANCER
     Route: 042
     Dates: start: 20130331, end: 20130613
  2. VINORELBINE [Suspect]
     Indication: BREAST CANCER
     Route: 042
     Dates: start: 20130331, end: 20130613
  3. CYMBALTA [Concomitant]
  4. ELAVIL (CANADA) [Concomitant]
  5. PANTOLOC [Concomitant]

REACTIONS (4)
  - Vomiting [Recovered/Resolved]
  - Mass [Recovered/Resolved]
  - Asthenia [Unknown]
  - Weight decreased [Recovered/Resolved]
